FAERS Safety Report 9052551 (Version 2)
Quarter: 2013Q2

REPORT INFORMATION
  Report Type: Spontaneous
  Country: US (occurrence: US)
  Receive Date: 20130207
  Receipt Date: 20130417
  Transmission Date: 20140414
  Serious: Yes (Other)
  Sender: FDA-Public Use
  Company Number: US-GENZYME-FABR-1002821

PATIENT
  Age: 44 Year
  Sex: Male
  Weight: 65 kg

DRUGS (8)
  1. FABRAZYME [Suspect]
     Indication: FABRY^S DISEASE
     Dosage: 1 MG/KG, Q2W
     Route: 042
     Dates: start: 2002, end: 20120530
  2. FABRAZYME [Suspect]
     Dosage: 1 MG/KG, Q2W
     Route: 042
     Dates: start: 20130124
  3. GABAPENTIN [Concomitant]
     Indication: PARAESTHESIA
     Dosage: 100 MG, BID
     Route: 065
  4. SEVELAMER CARBONATE [Concomitant]
     Indication: NEPHROPATHY
     Dosage: 800 MG, TID
     Route: 065
  5. DARBEPOETIN ALFA [Concomitant]
     Indication: ANAEMIA
     Dosage: 75 MCG, 1X/W
     Route: 042
     Dates: start: 20120813
  6. NEXIUM [Concomitant]
     Indication: GASTROOESOPHAGEAL REFLUX DISEASE
     Dosage: 1 DF, QD
     Route: 065
     Dates: start: 20120802
  7. PANCALCITOL [Concomitant]
     Indication: VITAMIN D DEFICIENCY
     Dosage: 7 MCG, 3X/W
     Route: 042
  8. PERCOCET [Concomitant]
     Indication: BACK PAIN
     Dosage: 1 DF, PRN
     Route: 065
     Dates: start: 20121224

REACTIONS (1)
  - Transplant failure [Not Recovered/Not Resolved]
